FAERS Safety Report 15811797 (Version 1)
Quarter: 2019Q1

REPORT INFORMATION
  Report Type: Spontaneous
  Country: TR (occurrence: TR)
  Receive Date: 20190111
  Receipt Date: 20190111
  Transmission Date: 20190417
  Serious: Yes (Other)
  Sender: FDA-Public Use
  Company Number: TR-TELIGENT, INC-IGIL20190010

PATIENT
  Age: 60 Year

DRUGS (1)
  1. CEFUROXIME SODIUM. [Suspect]
     Active Substance: CEFUROXIME SODIUM
     Indication: PRODUCT USED FOR UNKNOWN INDICATION
     Dosage: 1 MG/0.1 ML

REACTIONS (16)
  - Retinal haemorrhage [Recovered/Resolved]
  - Retinal toxicity [Unknown]
  - Vitreal cells [Recovered/Resolved]
  - Visual impairment [Unknown]
  - Retinal vascular disorder [Recovering/Resolving]
  - Optic atrophy [Unknown]
  - Incorrect route of product administration [None]
  - Visual acuity reduced [Unknown]
  - Vitritis [Unknown]
  - Retinal infarction [Unknown]
  - Retinal degeneration [Unknown]
  - Retinal disorder [Unknown]
  - Corneal oedema [Recovered/Resolved]
  - Anterior chamber cell [Recovered/Resolved]
  - Retinal oedema [Unknown]
  - Retinal neovascularisation [Unknown]
